FAERS Safety Report 13375337 (Version 1)
Quarter: 2017Q1

REPORT INFORMATION
  Report Type: Spontaneous
  Country: FR (occurrence: FR)
  Receive Date: 20170327
  Receipt Date: 20170327
  Transmission Date: 20170429
  Serious: Yes (Hospitalization)
  Sender: FDA-Public Use
  Company Number: FR-BRISTOL-MYERS SQUIBB COMPANY-BMS-2017-018488

PATIENT
  Age: 80 Year
  Sex: Female

DRUGS (6)
  1. VANCOMYCIN SANDOZ [Suspect]
     Active Substance: VANCOMYCIN
     Indication: ESCHERICHIA PYELONEPHRITIS
     Dosage: UNK
     Route: 042
     Dates: start: 20161121, end: 20161125
  2. AZTREONAM. [Suspect]
     Active Substance: AZTREONAM
     Indication: ESCHERICHIA INFECTION
     Dosage: UNK
     Route: 048
     Dates: start: 20161205, end: 20161208
  3. PIPERACILLIN TAZOBACTAM PA [Suspect]
     Active Substance: PIPERACILLIN SODIUM\TAZOBACTAM SODIUM
     Indication: ESCHERICHIA PYELONEPHRITIS
     Dosage: UNK
     Route: 042
     Dates: start: 20161119, end: 20161129
  4. IMNOVID [Suspect]
     Active Substance: POMALIDOMIDE
     Indication: PLASMA CELL MYELOMA
     Route: 048
  5. AMIKLIN [Suspect]
     Active Substance: AMIKACIN SULFATE
     Indication: ESCHERICHIA PYELONEPHRITIS
     Route: 065
  6. TAVANIC [Suspect]
     Active Substance: LEVOFLOXACIN
     Indication: ESCHERICHIA PYELONEPHRITIS
     Dosage: UNK
     Route: 048
     Dates: start: 20161126, end: 20161203

REACTIONS (6)
  - Rash maculo-papular [Recovering/Resolving]
  - Lymphadenopathy [Recovering/Resolving]
  - Allergic oedema [Recovering/Resolving]
  - Rash erythematous [Recovering/Resolving]
  - Erythema [Unknown]
  - Oedema peripheral [Unknown]

NARRATIVE: CASE EVENT DATE: 20161125
